FAERS Safety Report 6301407-8 (Version None)
Quarter: 2009Q3

REPORT INFORMATION
  Report Type: 
  Country: None (occurrence: None)
  Receive Date: 20090807
  Receipt Date: 20090804
  Transmission Date: 20100115
  Serious: Yes (Other)
  Sender: FDA-Public Use
  Company Number: GB-PFIZER INC-2009249781

PATIENT
  Age: 63 Year

DRUGS (2)
  1. ATORVASTATIN CALCIUM [Suspect]
     Indication: BLOOD CHOLESTEROL INCREASED
     Dosage: 10 MG, UNK
     Route: 048
     Dates: start: 20071109, end: 20090608
  2. EFLORNITHINE [Concomitant]
     Indication: HIRSUTISM
     Route: 061

REACTIONS (1)
  - NEUTROPENIA [None]
